FAERS Safety Report 12724870 (Version 1)
Quarter: 2016Q3

REPORT INFORMATION
  Report Type: Spontaneous
  Country: US (occurrence: US)
  Receive Date: 20160908
  Receipt Date: 20160908
  Transmission Date: 20161109
  Serious: No
  Sender: FDA-Public Use
  Company Number: US-GLAXOSMITHKLINE-US2016128069

PATIENT
  Age: 45 Year
  Sex: Female

DRUGS (1)
  1. PREVACID 24 HR [Suspect]
     Active Substance: LANSOPRAZOLE
     Indication: DYSPEPSIA
     Dosage: UNK
     Route: 048

REACTIONS (7)
  - Sensation of foreign body [Not Recovered/Not Resolved]
  - Incorrect drug administration duration [Unknown]
  - Asthma [Not Recovered/Not Resolved]
  - Muscle spasms [Recovered/Resolved]
  - Gallbladder disorder [Not Recovered/Not Resolved]
  - Alopecia [Not Recovered/Not Resolved]
  - Overweight [Not Recovered/Not Resolved]
